FAERS Safety Report 7278408-9 (Version None)
Quarter: 2011Q1

REPORT INFORMATION
  Report Type: 
  Country: None (occurrence: None)
  Receive Date: 20110207
  Receipt Date: 20110201
  Transmission Date: 20110831
  Serious: Yes (Life-Threatening)
  Sender: FDA-Public Use
  Company Number: NL-ELI_LILLY_AND_COMPANY-NL201002006089

PATIENT
  Sex: Male
  Weight: 85 kg

DRUGS (2)
  1. TRANXENE [Concomitant]
     Indication: EMOTIONAL DISTRESS
     Dosage: 5 MG, UNK
     Dates: start: 20080815, end: 20080817
  2. ZYPREXA [Suspect]
     Indication: EMOTIONAL DISTRESS
     Dosage: 5 MG, UNK
     Dates: start: 20080817, end: 20080818

REACTIONS (5)
  - AMNESIA [None]
  - ROAD TRAFFIC ACCIDENT [None]
  - ALTERED STATE OF CONSCIOUSNESS [None]
  - OFF LABEL USE [None]
  - HYPOAESTHESIA ORAL [None]
